FAERS Safety Report 6128218-0 (Version None)
Quarter: 2009Q1

REPORT INFORMATION
  Report Type: 
  Country: None (occurrence: None)
  Receive Date: 20090323
  Receipt Date: 20090310
  Transmission Date: 20090719
  Serious: Yes (Hospitalization)
  Sender: FDA-Public Use
  Company Number: IL-ELI_LILLY_AND_COMPANY-IL200903002903

PATIENT
  Age: 65 Year
  Sex: Male

DRUGS (3)
  1. ALIMTA [Suspect]
     Dosage: 700 MG, ONCE EVERY 3 WEEKS
     Route: 042
  2. ALIMTA [Suspect]
     Dosage: 700 MG,  ON DAY 1 AND 8
     Route: 042
  3. CISPLATIN [Concomitant]
     Dosage: UNK, UNKNOWN
     Route: 065

REACTIONS (6)
  - ASCITES [None]
  - BLOOD BILIRUBIN INCREASED [None]
  - NEUTROPENIA [None]
  - OVERDOSE [None]
  - RESPIRATORY DISORDER [None]
  - THROMBOCYTOPENIA [None]
